FAERS Safety Report 23489096 (Version 1)
Quarter: 2024Q1

REPORT INFORMATION
  Report Type: Spontaneous
  Country: US (occurrence: US)
  Receive Date: 20240206
  Receipt Date: 20240206
  Transmission Date: 20240409
  Serious: No
  Sender: FDA-Public Use
  Company Number: US-GALDERMA-US2024000212

PATIENT

DRUGS (3)
  1. PROACTIV MD ADAPALENE ACNE TREATMENT [Suspect]
     Active Substance: ADAPALENE
     Indication: Eczema
     Dosage: 1 DOSAGE FORM
     Route: 061
  2. Proactiv MD Ultra Gentle Cleanser [Concomitant]
     Indication: Eczema
     Dosage: 1 DOSAGE FORM, BID
     Route: 061
     Dates: start: 2023
  3. Proactiv MD Ultra Hydrating Moisturizer [Concomitant]
     Indication: Eczema
     Dosage: 1 DOSAGE FORM, BID
     Route: 061
     Dates: start: 2023

REACTIONS (2)
  - Product use in unapproved indication [Recovered/Resolved]
  - Drug ineffective for unapproved indication [Recovered/Resolved]
